FAERS Safety Report 20136858 (Version 5)
Quarter: 2024Q1

REPORT INFORMATION
  Report Type: Spontaneous
  Country: US (occurrence: US)
  Receive Date: 20211201
  Receipt Date: 20240212
  Transmission Date: 20240409
  Serious: No
  Sender: FDA-Public Use
  Company Number: US-MYLANLABS-2021M1075293

PATIENT
  Sex: Female

DRUGS (3)
  1. ESTRADIOL [Suspect]
     Active Substance: ESTRADIOL
     Indication: Vaginal haemorrhage
     Dosage: 0.01 PERCENT
     Route: 067
     Dates: start: 202001
  2. ESTRADIOL [Suspect]
     Active Substance: ESTRADIOL
     Indication: Atrophic vulvovaginitis
     Dosage: 0.01 PERCENT
     Route: 067
  3. ESTRADIOL [Suspect]
     Active Substance: ESTRADIOL
     Indication: Vaginal disorder
     Dosage: 0.01 PERCENT, TWICE A WEEK
     Route: 067

REACTIONS (4)
  - Product use issue [Unknown]
  - Device delivery system issue [Unknown]
  - Device issue [Unknown]
  - Wrong technique in device usage process [Unknown]
